FAERS Safety Report 4521174-8 (Version None)
Quarter: 2004Q4

REPORT INFORMATION
  Report Type: 
  Country: None (occurrence: None)
  Receive Date: 20041203
  Receipt Date: 20041125
  Transmission Date: 20050328
  Serious: Yes (Death)
  Sender: FDA-Public Use
  Company Number: 2004PK02017

PATIENT
  Age: 22 Year
  Sex: Female

DRUGS (4)
  1. PROPOFOL [Suspect]
     Indication: STATUS EPILEPTICUS
     Dosage: 5.75 MG/KG CONT; IV
     Route: 042
  2. MIDAZOLAM HCL [Concomitant]
  3. VALPROIC ACID [Concomitant]
  4. ANTIBIOTICS [Concomitant]

REACTIONS (10)
  - BLOOD PRESSURE INCREASED [None]
  - BRADYCARDIA [None]
  - DRUG EFFECT DECREASED [None]
  - ELECTROMECHANICAL DISSOCIATION [None]
  - HYPERKALAEMIA [None]
  - METABOLIC ACIDOSIS [None]
  - PROPOFOL INFUSION SYNDROME [None]
  - RESPIRATORY FAILURE [None]
  - TACHYCARDIA [None]
  - VENTRICULAR TACHYCARDIA [None]
